FAERS Safety Report 21715676 (Version 1)
Quarter: 2022Q4

REPORT INFORMATION
  Report Type: Report from Study
  Country: CO (occurrence: CO)
  Receive Date: 20221212
  Receipt Date: 20221212
  Transmission Date: 20230112
  Serious: Yes (Other)
  Sender: FDA-Public Use
  Company Number: CO-BRISTOL-MYERS SQUIBB COMPANY-2022-150695

PATIENT
  Age: 61 Year
  Sex: Female

DRUGS (2)
  1. ELIQUIS [Suspect]
     Active Substance: APIXABAN
     Indication: Pulmonary embolism
     Route: 048
     Dates: start: 202206
  2. ELIQUIS [Suspect]
     Active Substance: APIXABAN
     Indication: Pulmonary hypertension

REACTIONS (2)
  - Cardiac disorder [Unknown]
  - Intentional product use issue [Unknown]
